FAERS Safety Report 9732102 (Version 1)
Quarter: 2013Q4

REPORT INFORMATION
  Report Type: Spontaneous
  Country: US (occurrence: None)
  Receive Date: 20131203
  Receipt Date: 20131203
  Transmission Date: 20140711
  Serious: Yes (Death, Other)
  Sender: FDA-Public Use
  Company Number: US-ALKEM-000287

PATIENT
  Age: 54 Year
  Sex: Male

DRUGS (4)
  1. METFORMIN [Suspect]
     Dosage: ORAL
     Route: 048
  2. LISINOPRIL(LISINOPRIL) [Suspect]
     Dosage: ORAL
     Route: 048
  3. GLIPIZIDE [Suspect]
     Dosage: ORAL
     Route: 048
  4. METFORMIN/SITAGLIPTIN [Suspect]
     Dosage: ORAL
     Route: 048

REACTIONS (2)
  - Completed suicide [None]
  - Exposure via ingestion [None]
